FAERS Safety Report 24870766 (Version 1)
Quarter: 2025Q1

REPORT INFORMATION
  Report Type: Spontaneous
  Country: BR (occurrence: BR)
  Receive Date: 20250121
  Receipt Date: 20250121
  Transmission Date: 20250408
  Serious: Yes (Other)
  Sender: JOHNSON AND JOHNSON
  Company Number: BR-JNJFOC-20250144967

PATIENT
  Sex: Female

DRUGS (3)
  1. HALDOL [Suspect]
     Active Substance: HALOPERIDOL
     Indication: Epilepsy
     Dosage: ONE TABLET IN THE MORNING AND ONE AT NIGHT OF THE MEDICATION
     Route: 048
  2. DIAZEPAM [Concomitant]
     Active Substance: DIAZEPAM
  3. PHENOBARBITAL [Concomitant]
     Active Substance: PHENOBARBITAL
     Route: 048

REACTIONS (9)
  - Cardiac operation [Unknown]
  - Diplegia [Unknown]
  - Breast cancer [Unknown]
  - Dizziness [Unknown]
  - Nausea [Unknown]
  - Dysphagia [Unknown]
  - Amnesia [Unknown]
  - Visual impairment [Unknown]
  - Off label use [Unknown]
